FAERS Safety Report 21956252 (Version 2)
Quarter: 2024Q2

REPORT INFORMATION
  Report Type: Spontaneous
  Country: US (occurrence: US)
  Receive Date: 20230206
  Receipt Date: 20240531
  Transmission Date: 20240716
  Serious: No
  Sender: FDA-Public Use
  Company Number: US-SA-SAC20230202001006

PATIENT
  Age: 44 Year
  Sex: Female
  Weight: 79.8 kg

DRUGS (5)
  1. DUPIXENT [Suspect]
     Active Substance: DUPILUMAB
     Indication: Dermatitis atopic
     Dosage: 300 MG, QOW
     Route: 058
     Dates: start: 202204
  2. LISINOPRIL [Concomitant]
     Active Substance: LISINOPRIL
  3. OMEPRAZOLE [Concomitant]
     Active Substance: DONEPEZIL HYDROCHLORIDE\OMEPRAZOLE\OMEPRAZOLE MAGNESIUM
  4. FAMOTIDINE [Concomitant]
     Active Substance: FAMOTIDINE
  5. METOPROLOL SUCCINATE [Concomitant]
     Active Substance: METOPROLOL SUCCINATE

REACTIONS (6)
  - Skin fissures [Unknown]
  - Dry skin [Unknown]
  - Pain of skin [Unknown]
  - Pruritus [Unknown]
  - Erythema [Unknown]
  - Insomnia [Unknown]

NARRATIVE: CASE EVENT DATE: 20240501
